FAERS Safety Report 19881809 (Version 1)
Quarter: 2021Q3

REPORT INFORMATION
  Report Type: Spontaneous
  Country: FR (occurrence: FR)
  Receive Date: 20210925
  Receipt Date: 20210925
  Transmission Date: 20211014
  Serious: Yes (Hospitalization)
  Sender: FDA-Public Use
  Company Number: NVSC2021FR217236

PATIENT
  Age: 22 Year
  Sex: Female

DRUGS (3)
  1. ZOPICLONE [Suspect]
     Active Substance: ZOPICLONE
     Indication: POISONING DELIBERATE
     Dosage: 105 MG (14 CP DE 7.5MG AU TOTAL)
     Route: 048
     Dates: start: 20210911, end: 20210911
  2. ALPRAZOLAM. [Suspect]
     Active Substance: ALPRAZOLAM
     Indication: POISONING DELIBERATE
     Dosage: 10 DF (10 CP AU TOTAL)
     Route: 048
     Dates: start: 20210911, end: 20210911
  3. LITHIUM. [Suspect]
     Active Substance: LITHIUM
     Indication: POISONING DELIBERATE
     Dosage: UNK,INCONNUE
     Route: 048
     Dates: start: 20210911, end: 20210911

REACTIONS (4)
  - Poisoning deliberate [Recovering/Resolving]
  - Seizure [Recovering/Resolving]
  - Antipsychotic drug level increased [Recovering/Resolving]
  - Somnolence [Recovering/Resolving]

NARRATIVE: CASE EVENT DATE: 20210911
